FAERS Safety Report 6407115-7 (Version None)
Quarter: 2009Q4

REPORT INFORMATION
  Report Type: 
  Country: None (occurrence: None)
  Receive Date: 20091014
  Receipt Date: 20090929
  Transmission Date: 20100525
  Serious: Yes (Hospitalization)
  Sender: FDA-Public Use
  Company Number: 20090344

PATIENT
  Age: 23 Year
  Sex: Female

DRUGS (18)
  1. VENOFER [Suspect]
     Indication: ANAEMIA POSTOPERATIVE
     Dosage: 200 MG INTRAVENOUS
     Route: 042
     Dates: start: 20090715, end: 20090715
  2. VENOFER [Suspect]
     Dosage: 300 MG. INTRAVENOUS
     Route: 042
     Dates: start: 20090717, end: 20090717
  3. CELOCURINE (SUXAMETHONIUM) [Concomitant]
  4. CLAMOXYL (AMOXOCILLIN) [Concomitant]
  5. DIPRIVAN [Concomitant]
  6. GLUCIDION (SODIUM CHLORIDE, POTASSIUM CHLORIDE, GLUCOSE) [Concomitant]
  7. LOVENOX [Concomitant]
  8. PERFALGAN (PARACETAMOL) [Concomitant]
  9. PROFENID (KETOPROFENE) [Concomitant]
  10. RUDIVAX (RUBELLA STRAIN WISTAR RA 27/3) [Concomitant]
  11. SUFENTA [Concomitant]
  12. SYNTOCINON [Concomitant]
  13. TAGAMET [Concomitant]
  14. TRACRIUM [Concomitant]
  15. MORPHINE, CONTINUOUS INFUSION MODE [Concomitant]
  16. CEFOXITIN [Concomitant]
  17. ANTISPASMODIC DRUGS [Concomitant]
  18. RINGER'S [Concomitant]

REACTIONS (3)
  - ARTHRALGIA [None]
  - PULMONARY EMBOLISM [None]
  - THROMBOPHLEBITIS SUPERFICIAL [None]
